FAERS Safety Report 14269156 (Version 1)
Quarter: 2017Q4

REPORT INFORMATION
  Report Type: Spontaneous
  Country: US (occurrence: US)
  Receive Date: 20171211
  Receipt Date: 20171211
  Transmission Date: 20180321
  Serious: Yes (Hospitalization, Other)
  Sender: FDA-Public Use
  Company Number: US-OTSUKA-2017_010107

PATIENT

DRUGS (7)
  1. ABILIFY [Suspect]
     Active Substance: ARIPIPRAZOLE
     Indication: POST-TRAUMATIC STRESS DISORDER
     Dosage: UNK
     Route: 065
  2. ABILIFY [Suspect]
     Active Substance: ARIPIPRAZOLE
     Indication: DYSKINESIA
     Dosage: UNK
     Route: 065
  3. ABILIFY [Suspect]
     Active Substance: ARIPIPRAZOLE
     Indication: ANXIETY
     Dosage: UNK
     Route: 065
  4. ABILIFY [Suspect]
     Active Substance: ARIPIPRAZOLE
     Indication: BIPOLAR DISORDER
     Dosage: 1 DF, UNK
     Route: 065
     Dates: start: 2001, end: 2015
  5. ABILIFY [Suspect]
     Active Substance: ARIPIPRAZOLE
     Indication: DYSKINESIA
     Dosage: UNK
     Route: 065
  6. ABILIFY [Suspect]
     Active Substance: ARIPIPRAZOLE
     Indication: MAJOR DEPRESSION
     Dosage: UNK
     Route: 065
  7. ABILIFY [Suspect]
     Active Substance: ARIPIPRAZOLE
     Indication: INSOMNIA
     Dosage: UNK
     Route: 065

REACTIONS (13)
  - Hypersexuality [Unknown]
  - Mental disorder [Unknown]
  - Restless legs syndrome [Unknown]
  - Suicidal ideation [Unknown]
  - Obsessive-compulsive disorder [Unknown]
  - Excoriation [Unknown]
  - Trichotillomania [Unknown]
  - Impulsive behaviour [Unknown]
  - Surgery [Unknown]
  - Parkinson^s disease [Unknown]
  - Gambling [Unknown]
  - Suicide attempt [Unknown]
  - Prescribed overdose [Unknown]
